FAERS Safety Report 5811950-3 (Version None)
Quarter: 2008Q3

REPORT INFORMATION
  Report Type: 
  Country: None (occurrence: None)
  Receive Date: 20080716
  Receipt Date: 20080707
  Transmission Date: 20090109
  Serious: Yes (Other)
  Sender: FDA-Public Use
  Company Number: US-ELI_LILLY_AND_COMPANY-US200806005433

PATIENT
  Sex: Female

DRUGS (1)
  1. EVISTA [Suspect]
     Indication: OSTEOPOROSIS
     Dosage: 60 MG, UNK
     Dates: start: 20000101, end: 20080518

REACTIONS (5)
  - BACK DISORDER [None]
  - CATARACT [None]
  - FRACTURE [None]
  - HOT FLUSH [None]
  - VISION BLURRED [None]
